FAERS Safety Report 6716593-5 (Version None)
Quarter: 2010Q2

REPORT INFORMATION
  Report Type: 
  Country: None (occurrence: None)
  Receive Date: 20100507
  Receipt Date: 20100427
  Transmission Date: 20101027
  Serious: Yes (Hospitalization)
  Sender: FDA-Public Use
  Company Number: NL-GENENTECH-301196

PATIENT

DRUGS (2)
  1. MABTHERA [Suspect]
     Indication: DRUG USE FOR UNKNOWN INDICATION
     Dosage: UNK
     Route: 042
  2. MABTHERA [Suspect]
     Dosage: FORM: INFUSION, 500 MG BATCH H069B01 COMBINED WITH 100 MG BATCH H0017B01
     Route: 042
     Dates: start: 20100414

REACTIONS (1)
  - MALAISE [None]
